FAERS Safety Report 22296969 (Version 2)
Quarter: 2023Q2

REPORT INFORMATION
  Report Type: Report from Study
  Country: US (occurrence: US)
  Receive Date: 20230509
  Receipt Date: 20230510
  Transmission Date: 20230722
  Serious: No
  Sender: FDA-Public Use
  Company Number: US-002147023-NVSC2023US100058

PATIENT
  Sex: Female

DRUGS (1)
  1. COSENTYX [Suspect]
     Active Substance: SECUKINUMAB
     Indication: Product used for unknown indication
     Dosage: 300 MG, Q2W
     Route: 058
     Dates: start: 20160101, end: 20230501

REACTIONS (2)
  - Arthropod sting [Recovered/Resolved]
  - Peripheral swelling [Recovered/Resolved]
